FAERS Safety Report 21609809 (Version 1)
Quarter: 2022Q4

REPORT INFORMATION
  Report Type: Report from Study
  Country: US (occurrence: US)
  Receive Date: 20221117
  Receipt Date: 20221117
  Transmission Date: 20230113
  Serious: Yes (Hospitalization)
  Sender: FDA-Public Use
  Company Number: US-JNJFOC-20221104259

PATIENT
  Age: 50 Year
  Sex: Male
  Weight: 84.5 kg

DRUGS (5)
  1. APALUTAMIDE [Suspect]
     Active Substance: APALUTAMIDE
     Indication: Prostate cancer
     Dosage: MED KIT: 003-7689
     Route: 048
     Dates: start: 20220929, end: 20221025
  2. APALUTAMIDE [Suspect]
     Active Substance: APALUTAMIDE
     Dosage: MED KIT: 003-7889, LAST DOSE: 25-OCT-2022
     Route: 048
     Dates: start: 20220512
  3. DEGARELIX [Suspect]
     Active Substance: DEGARELIX
     Indication: Prostate cancer
     Route: 058
  4. LEUPROLIDE ACETATE [Suspect]
     Active Substance: LEUPROLIDE ACETATE
     Indication: Prostate cancer
     Route: 030
     Dates: start: 20220519
  5. LEUPROLIDE ACETATE [Suspect]
     Active Substance: LEUPROLIDE ACETATE
     Route: 030
     Dates: start: 20221027

REACTIONS (4)
  - Hyperlipidaemia [Recovered/Resolved]
  - Lethargy [Recovered/Resolved]
  - Transient ischaemic attack [Recovered/Resolved]
  - Headache [Recovered/Resolved]

NARRATIVE: CASE EVENT DATE: 20221028
